FAERS Safety Report 7233252-3 (Version None)
Quarter: 2011Q1

REPORT INFORMATION
  Report Type: 
  Country: None (occurrence: None)
  Receive Date: 20110119
  Receipt Date: 20110112
  Transmission Date: 20110831
  Serious: Yes (Other)
  Sender: FDA-Public Use
  Company Number: B0693745A

PATIENT
  Age: 39 Year
  Sex: Male

DRUGS (3)
  1. ARIXTRA [Suspect]
     Indication: PRODUCT USED FOR UNKNOWN INDICATION
     Dosage: 2.5MG PER DAY
     Route: 058
     Dates: start: 20100929, end: 20101003
  2. AUGMENTIN [Suspect]
     Indication: ARTHRITIS INFECTIVE
     Dosage: 3G PER DAY
     Route: 042
     Dates: start: 20100927, end: 20100930
  3. PYOSTACINE [Suspect]
     Indication: ARTHRITIS INFECTIVE
     Dosage: 3G PER DAY
     Route: 042
     Dates: start: 20101001, end: 20101004

REACTIONS (1)
  - HEPATOCELLULAR INJURY [None]
